FAERS Safety Report 5233826-5 (Version None)
Quarter: 2007Q1

REPORT INFORMATION
  Report Type: 
  Country: None (occurrence: None)
  Receive Date: 20070208
  Receipt Date: 20070205
  Transmission Date: 20070707
  Serious: Yes (Death)
  Sender: FDA-Public Use
  Company Number: JP-ELI_LILLY_AND_COMPANY-JP200611001242

PATIENT
  Age: 75 Year
  Sex: Female
  Weight: 50 kg

DRUGS (3)
  1. RALOXIFENE HCL [Suspect]
     Indication: OSTEOPOROSIS POSTMENOPAUSAL
     Dosage: 60 MG, DAILY (1/D)
     Route: 048
     Dates: start: 20041218, end: 20051121
  2. THIOLA [Concomitant]
     Indication: CHRONIC HEPATITIS
     Dosage: 300 MG, DAILY (1/D)
     Route: 048
     Dates: end: 20051111
  3. PROTOPORPHYRIN DISODIUM [Concomitant]
     Indication: CHRONIC HEPATITIS
     Dosage: 60 MG, DAILY (1/D)
     Route: 048
     Dates: end: 20051111

REACTIONS (1)
  - CEREBROVASCULAR DISORDER [None]
